FAERS Safety Report 23282620 (Version 2)
Quarter: 2024Q1

REPORT INFORMATION
  Report Type: Spontaneous
  Country: US (occurrence: US)
  Receive Date: 20231211
  Receipt Date: 20240108
  Transmission Date: 20240410
  Serious: Yes (Hospitalization, Other)
  Sender: FDA-Public Use
  Company Number: US-GILEAD-2023-0654203

PATIENT
  Age: 62 Year
  Sex: Male
  Weight: 80.4 kg

DRUGS (16)
  1. TECARTUS [Suspect]
     Active Substance: BREXUCABTAGENE AUTOLEUCEL
     Indication: Mantle cell lymphoma
     Dosage: UNK
     Route: 042
     Dates: start: 20230731, end: 20230731
  2. DEXAMETHASONE [Concomitant]
     Active Substance: DEXAMETHASONE
     Dosage: UNK
     Dates: start: 20230807, end: 20231005
  3. ACALABRUTINIB [Concomitant]
     Active Substance: ACALABRUTINIB
  4. FLUDARABINE [Concomitant]
     Active Substance: FLUDARABINE PHOSPHATE
     Indication: Bone marrow conditioning regimen
  5. CYCLOPHOSPHAMIDE [Concomitant]
     Active Substance: CYCLOPHOSPHAMIDE
     Indication: Bone marrow conditioning regimen
  6. ZYLOPRIM [Concomitant]
     Active Substance: ALLOPURINOL
     Dosage: UNK MG
  7. PROCHLORPERAZINE EDISYLATE [Concomitant]
     Active Substance: PROCHLORPERAZINE EDISYLATE
  8. BACTRIM [Concomitant]
     Active Substance: SULFAMETHOXAZOLE\TRIMETHOPRIM
  9. ZOVIRAX [Concomitant]
     Active Substance: ACYCLOVIR
  10. MEPRON [Concomitant]
     Active Substance: ATOVAQUONE
  11. CALCIUM CARBONATE [Concomitant]
     Active Substance: CALCIUM CARBONATE
  12. DECADRON [Concomitant]
     Active Substance: DEXAMETHASONE
  13. ZOFRAN [Concomitant]
     Active Substance: ONDANSETRON HYDROCHLORIDE
  14. NOXAFIL [Concomitant]
     Active Substance: POSACONAZOLE
  15. VALTREX [Concomitant]
     Active Substance: VALACYCLOVIR HYDROCHLORIDE
  16. COMPAZINE [Concomitant]
     Active Substance: PROCHLORPERAZINE MALEATE

REACTIONS (7)
  - Serum ferritin increased [Not Recovered/Not Resolved]
  - Thrombocytopenia [Unknown]
  - Neurotoxicity [Recovered/Resolved]
  - Febrile neutropenia [Recovered/Resolved]
  - Immune effector cell-associated neurotoxicity syndrome [Unknown]
  - Hypotension [Unknown]
  - Hypofibrinogenaemia [Unknown]

NARRATIVE: CASE EVENT DATE: 20230805
